FAERS Safety Report 10065548 (Version 1)
Quarter: 2014Q2

REPORT INFORMATION
  Report Type: Spontaneous
  Country: US (occurrence: US)
  Receive Date: 20140408
  Receipt Date: 20140408
  Transmission Date: 20141212
  Serious: No
  Sender: FDA-Public Use
  Company Number: US-BAYER-2014-048064

PATIENT
  Sex: 0

DRUGS (2)
  1. ALEVE CAPLET [Suspect]
     Indication: MIGRAINE
  2. AXERT [Concomitant]
     Indication: MIGRAINE
     Dosage: UNK
     Dates: start: 2009

REACTIONS (1)
  - Intentional product misuse [None]
